FAERS Safety Report 5829463-1 (Version None)
Quarter: 2008Q3

REPORT INFORMATION
  Report Type: 
  Country: None (occurrence: None)
  Receive Date: 20080729
  Receipt Date: 20080715
  Transmission Date: 20090109
  Serious: Yes (Life-Threatening)
  Sender: FDA-Public Use
  Company Number: 2008AP001749

PATIENT
  Age: 66 Year
  Sex: Female

DRUGS (1)
  1. TORSEMIDE TABLETS (10 MG) [Suspect]
     Indication: HYPERTENSION
     Dosage: 10 MG; QD; PO
     Route: 048
     Dates: start: 20060101

REACTIONS (4)
  - DYSPNOEA [None]
  - FLUID RETENTION [None]
  - HEADACHE [None]
  - URINE OUTPUT DECREASED [None]
